FAERS Safety Report 24689129 (Version 1)
Quarter: 2024Q4

REPORT INFORMATION
  Report Type: Spontaneous
  Country: ES (occurrence: ES)
  Receive Date: 20241203
  Receipt Date: 20241203
  Transmission Date: 20250115
  Serious: Yes (Other)
  Sender: ROCHE
  Company Number: ES-ROCHE-10000144970

PATIENT
  Age: 66 Year
  Sex: Male

DRUGS (6)
  1. ATEZOLIZUMAB [Suspect]
     Active Substance: ATEZOLIZUMAB
     Indication: Hepatocellular carcinoma
     Route: 065
  2. BEVACIZUMAB [Suspect]
     Active Substance: BEVACIZUMAB
     Indication: Hepatocellular carcinoma
     Route: 065
  3. MEROPENEM [Concomitant]
     Active Substance: MEROPENEM
  4. AMPICILLIN [Concomitant]
     Active Substance: AMPICILLIN
  5. ACYCLOVIR [Concomitant]
     Active Substance: ACYCLOVIR
  6. LENVATINIB [Concomitant]
     Active Substance: LENVATINIB

REACTIONS (1)
  - Immune-mediated encephalitis [Recovered/Resolved]
